FAERS Safety Report 9037254 (Version 1)
Quarter: 2013Q1

REPORT INFORMATION
  Report Type: Spontaneous
  Country: US (occurrence: None)
  Receive Date: 20130123
  Receipt Date: 20130123
  Transmission Date: 20140127
  Serious: Yes (Life-Threatening, Hospitalization)
  Sender: FDA-Public Use
  Company Number: None

PATIENT
  Age: 66 Year
  Sex: Female
  Weight: 68.04 kg

DRUGS (3)
  1. LISINOPRIL 10MG LUPIN [Suspect]
     Indication: INVESTIGATION
     Route: 048
     Dates: start: 20120201, end: 20121210
  2. LISINOPRIL 10MG LUPIN [Suspect]
     Indication: VOMITING
     Route: 048
     Dates: start: 20120201, end: 20121210
  3. LISINOPRIL 10MG LUPIN [Suspect]
     Indication: DEHYDRATION
     Route: 048
     Dates: start: 20120201, end: 20121210

REACTIONS (4)
  - Vomiting [None]
  - Dehydration [None]
  - Blood pressure decreased [None]
  - Body temperature decreased [None]
